FAERS Safety Report 15154180 (Version 1)
Quarter: 2018Q3

REPORT INFORMATION
  Report Type: Spontaneous
  Country: IT (occurrence: IT)
  Receive Date: 20180717
  Receipt Date: 20180717
  Transmission Date: 20181010
  Serious: Yes (Hospitalization)
  Sender: FDA-Public Use
  Company Number: IT-MYLANLABS-2018M1051041

PATIENT
  Age: 66 Year
  Sex: Male

DRUGS (1)
  1. FLUCONAZOLE. [Suspect]
     Active Substance: FLUCONAZOLE
     Indication: TINEA CRURIS
     Dosage: 1 DF, UNK
     Route: 048
     Dates: start: 20180403, end: 20180405

REACTIONS (7)
  - Drug hypersensitivity [Unknown]
  - Palpitations [Unknown]
  - Headache [Unknown]
  - Ocular hyperaemia [Unknown]
  - Erythema [Unknown]
  - Dyspepsia [Unknown]
  - Malaise [Unknown]

NARRATIVE: CASE EVENT DATE: 20180405
